FAERS Safety Report 9065158 (Version 3)
Quarter: 2013Q2

REPORT INFORMATION
  Report Type: Spontaneous
  Country: US (occurrence: US)
  Receive Date: 20130214
  Receipt Date: 20130412
  Transmission Date: 20140414
  Serious: Yes (Other)
  Sender: FDA-Public Use
  Company Number: US-PFIZER INC-2013057791

PATIENT
  Age: 73 Year
  Sex: Male
  Weight: 83.9 kg

DRUGS (27)
  1. SUTENT [Suspect]
     Indication: METASTATIC RENAL CELL CARCINOMA
     Dosage: 50 MG, DAILY FOR 28 DAYS AND TO BE FOLLOWED BY 14 DAYS OFF
     Dates: start: 20130207
  2. SUTENT [Suspect]
     Dosage: 37.5 MG, UNK
     Dates: start: 20130312
  3. COUMADIN [Concomitant]
     Dosage: 15 MG, 1X/DAY
     Route: 048
  4. METOPROLOL [Concomitant]
     Dosage: 1 (50 MG) TABLET BID
     Route: 048
  5. LOSARTAN POTASSIUM [Concomitant]
     Dosage: UNK
     Route: 048
  6. ADVAIR DISKUS [Concomitant]
     Dosage: UNK
     Route: 055
  7. ATORVASTATIN CALCIUM [Concomitant]
     Dosage: 1 TABLET (10 MG) DAILY AT BEDTIME
     Route: 048
  8. AMLODIPINE BESILATE [Concomitant]
     Dosage: 1 (5 MG) TABLET 1X/DAY
     Route: 048
  9. BENADRYL ALLERGY [Concomitant]
     Dosage: UNK, PRN
     Route: 048
  10. CENTRUM SILVER [Concomitant]
     Dosage: 1 DF, 1X/DAY
     Route: 048
  11. CLONAZEPAM [Concomitant]
     Dosage: 1(0.5 MG) TABLET, 3X/DAY
     Route: 048
  12. COUMADINE [Concomitant]
     Dosage: 15 MG, 1X/DAY
     Route: 048
  13. DUONEB [Concomitant]
     Dosage: UNK, EVERY 4 HRS
  14. FLECAINIDE ACETATE [Concomitant]
     Dosage: 1(100 MG)TABLET, 2X/DAY
     Route: 048
  15. GLIMEPIRIDE [Concomitant]
     Dosage: 4 MG, 1X/DAY
     Route: 048
  16. HYDROCODONE W/ACETAMINOPHEN [Concomitant]
     Dosage: (7.5-325 MG), EVERY 4 HRS
     Route: 048
  17. HYDROCODONE W/ACETAMINOPHEN [Concomitant]
     Dosage: (10-325 MG), EVERY 4 HRS
     Route: 048
  18. HYDROXYZINE PAMOATE [Concomitant]
     Dosage: 50 MG, Q 6 HOURS
     Route: 048
  19. LOSARTAN POTASSIUM W/HYDROCHLOROTHIAZIDE [Concomitant]
     Dosage: (100-25 MG), DAILY
     Route: 048
  20. METOPROLOL TARTRATE [Concomitant]
     Dosage: 50 MG, 2X/DAY
     Route: 048
  21. MIRAPEX [Concomitant]
     Dosage: 0.50 MG, (AT BEDTIME)
     Route: 048
  22. TAMSULOSIN HYDROCHLORIDE [Concomitant]
     Dosage: 0.4 MG, 1X/DAY
     Route: 048
  23. ZYRTEC [Concomitant]
     Dosage: 1 DF, (AT BEDTIME)
     Route: 048
  24. OMEPRAZOLE [Concomitant]
     Indication: PROPHYLAXIS
     Dosage: 20 MG, 2X/DAY
     Route: 048
     Dates: start: 20130130
  25. NYSTATIN [Concomitant]
     Dosage: 4 TIMES DAILY
  26. TUDORZA [Concomitant]
     Dosage: BID
  27. INSULIN [Concomitant]
     Dosage: 24 IU, 1X/DAY
     Route: 058

REACTIONS (14)
  - Deafness transitory [Unknown]
  - Diarrhoea [Unknown]
  - Skin exfoliation [Unknown]
  - Stomatitis [Unknown]
  - Dysgeusia [Unknown]
  - Constipation [Unknown]
  - Palmar-plantar erythrodysaesthesia syndrome [Unknown]
  - Nausea [Unknown]
  - Asthenia [Recovered/Resolved]
  - Night sweats [Unknown]
  - Depressed mood [Unknown]
  - Mood swings [Unknown]
  - Vision blurred [Unknown]
  - Productive cough [Unknown]
